FAERS Safety Report 10018401 (Version 1)
Quarter: 2014Q1

REPORT INFORMATION
  Report Type: Spontaneous
  Country: CL (occurrence: None)
  Receive Date: 20140312
  Receipt Date: 20140312
  Transmission Date: 20141002
  Serious: Yes (Other)
  Sender: FDA-Public Use
  Company Number: FK201400767

PATIENT
  Age: 47 Year
  Sex: Female

DRUGS (6)
  1. LEUCOVORIN CALCIUM (MANUFACTURER UNKNOWN) (LEUCOVORIN CALCIUM) (LEUCOVORIN CALCIUM) [Suspect]
     Indication: NEUROENDOCRINE CARCINOMA METASTATIC
  2. FLUOROURACIL (MANUFACTURER UNKNOWN) (FLUOROURACIL) (FLUOROURACIL) [Suspect]
     Indication: NEUROENDOCRINE CARCINOMA METASTATIC
  3. OXALIPLATIN (OXALIPLATIN) (OXALIPLATIN) [Suspect]
     Indication: NEUROENDOCRINE CARCINOMA METASTATIC
  4. BEVACIZUMAB (BEVACIZUMAB) (BEVACIZUMAB) [Suspect]
     Indication: NEUROENDOCRINE CARCINOMA METASTATIC
  5. CISPLATIN [Concomitant]
  6. ETOPOSIDE [Concomitant]

REACTIONS (3)
  - Neuropathy peripheral [None]
  - Metastases to liver [None]
  - Malignant neoplasm progression [None]
